FAERS Safety Report 14061678 (Version 2)
Quarter: 2017Q4

REPORT INFORMATION
  Report Type: Spontaneous
  Country: GB (occurrence: GB)
  Receive Date: 20171009
  Receipt Date: 20171116
  Transmission Date: 20180321
  Serious: Yes (Other)
  Sender: FDA-Public Use
  Company Number: GB-ACCORD-059636

PATIENT
  Age: 37 Year
  Sex: Female

DRUGS (5)
  1. CICLOSPORIN [Suspect]
     Active Substance: CYCLOSPORINE
     Indication: STEM CELL TRANSPLANT
     Dosage: BID
  2. MYCOPHENOLIC ACID. [Suspect]
     Active Substance: MYCOPHENOLIC ACID
     Indication: STEM CELL TRANSPLANT
     Dosage: TID
  3. CAMPATH [Concomitant]
     Active Substance: ALEMTUZUMAB
  4. FLUDARABINE [Concomitant]
     Active Substance: FLUDARABINE PHOSPHATE
  5. MELPHALAN. [Concomitant]
     Active Substance: MELPHALAN

REACTIONS (3)
  - Off label use [Unknown]
  - Infection [Recovered/Resolved]
  - Graft versus host disease in skin [Unknown]

NARRATIVE: CASE EVENT DATE: 201702
